FAERS Safety Report 22643877 (Version 1)
Quarter: 2023Q2

REPORT INFORMATION
  Report Type: Spontaneous
  Country: US (occurrence: US)
  Receive Date: 20230627
  Receipt Date: 20230627
  Transmission Date: 20230722
  Serious: Yes (Hospitalization)
  Sender: FDA-Public Use
  Company Number: US-STRIDES ARCOLAB LIMITED-2023SP010156

PATIENT

DRUGS (7)
  1. FUROSEMIDE [Suspect]
     Active Substance: FUROSEMIDE
     Indication: Product used for unknown indication
     Dosage: UNK
     Route: 065
  2. VANCOMYCIN [Suspect]
     Active Substance: VANCOMYCIN
     Indication: Lower respiratory tract infection bacterial
     Dosage: UNK, SYSTEMIC
     Route: 065
  3. VANCOMYCIN [Suspect]
     Active Substance: VANCOMYCIN
     Indication: Klebsiella infection
  4. PIPERACILLIN SODIUM\TAZOBACTAM SODIUM [Suspect]
     Active Substance: PIPERACILLIN SODIUM\TAZOBACTAM SODIUM
     Indication: Lower respiratory tract infection bacterial
     Dosage: UNK, SYSTEMIC
     Route: 065
  5. PIPERACILLIN SODIUM\TAZOBACTAM SODIUM [Suspect]
     Active Substance: PIPERACILLIN SODIUM\TAZOBACTAM SODIUM
     Indication: Klebsiella infection
  6. COLISTIN [Concomitant]
     Active Substance: COLISTIN
     Indication: Lower respiratory tract infection bacterial
     Dosage: 150 MILLIGRAM, BID, NEBULISED, RESPIRATORY (INHALATION)
     Route: 055
  7. COLISTIN [Concomitant]
     Active Substance: COLISTIN
     Indication: Klebsiella infection

REACTIONS (2)
  - Acute kidney injury [Unknown]
  - Off label use [Unknown]
